FAERS Safety Report 19040413 (Version 1)
Quarter: 2021Q1

REPORT INFORMATION
  Report Type: Spontaneous
  Country: CA (occurrence: CA)
  Receive Date: 20210323
  Receipt Date: 20210323
  Transmission Date: 20210420
  Serious: Yes (Hospitalization, Other)
  Sender: FDA-Public Use
  Company Number: CA-LUPIN PHARMACEUTICALS INC.-2021-03494

PATIENT
  Age: 5 Year
  Sex: Female

DRUGS (5)
  1. DUPILUMAB [Concomitant]
     Active Substance: DUPILUMAB
     Indication: PRURITUS
     Dosage: 100 MILLIGRAM 2 WEEKS
     Route: 058
  2. METHYLPREDNISOLONE. [Concomitant]
     Active Substance: METHYLPREDNISOLONE
     Indication: PRURITUS
     Dosage: 20 MILLIGRAM, QD (1 MG/KG/DAY)
     Route: 042
  3. VANCOMYCIN [Suspect]
     Active Substance: VANCOMYCIN
     Indication: VASCULAR DEVICE INFECTION
  4. METHYLPREDNISOLONE. [Concomitant]
     Active Substance: METHYLPREDNISOLONE
     Dosage: 10 MILLIGRAM, QD
     Route: 042
  5. VANCOMYCIN [Suspect]
     Active Substance: VANCOMYCIN
     Indication: STAPHYLOCOCCAL BACTERAEMIA
     Dosage: 70 MILLIGRAM/KILOGRAM, QD (14 DAY COURSE)
     Route: 042

REACTIONS (1)
  - Linear IgA disease [Recovered/Resolved]
